FAERS Safety Report 6869686-6 (Version None)
Quarter: 2010Q3

REPORT INFORMATION
  Report Type: 
  Country: None (occurrence: None)
  Receive Date: 20100722
  Receipt Date: 20081021
  Transmission Date: 20110219
  Serious: No
  Sender: FDA-Public Use
  Company Number: US-PFIZER INC-2008067822

PATIENT
  Sex: Male
  Weight: 104.5 kg

DRUGS (7)
  1. CHANTIX [Suspect]
     Indication: SMOKING CESSATION THERAPY
     Dates: start: 20080812
  2. BYETTA [Concomitant]
  3. METFORMIN [Concomitant]
  4. ATENOLOL [Concomitant]
  5. CADUET [Concomitant]
  6. BUSPAR [Concomitant]
  7. LISINOPRIL [Concomitant]

REACTIONS (4)
  - FLUSHING [None]
  - HYPERHIDROSIS [None]
  - NAUSEA [None]
  - VOMITING [None]
